FAERS Safety Report 4739242-4 (Version None)
Quarter: 2005Q3

REPORT INFORMATION
  Report Type: 
  Country: None (occurrence: None)
  Receive Date: 20050810
  Receipt Date: 20050609
  Transmission Date: 20060218
  Serious: No
  Sender: FDA-Public Use
  Company Number: US-GLAXOSMITHKLINE-A0562017A

PATIENT
  Age: 25 Year
  Sex: Female

DRUGS (2)
  1. PAXIL CR [Suspect]
     Indication: LYME DISEASE
     Dosage: 25MG PER DAY
     Route: 048
     Dates: start: 20021001, end: 20050601
  2. NO CONCURRENT MEDICATION [Concomitant]

REACTIONS (5)
  - CHILLS [None]
  - DIZZINESS [None]
  - DRUG WITHDRAWAL SYNDROME [None]
  - HYPERHIDROSIS [None]
  - IMPAIRED DRIVING ABILITY [None]
